FAERS Safety Report 8230221-1 (Version None)
Quarter: 2012Q1

REPORT INFORMATION
  Report Type: 
  Country: None (occurrence: None)
  Receive Date: 20120321
  Receipt Date: 20120321
  Transmission Date: 20120608
  Serious: Yes (Other)
  Sender: FDA-Public Use
  Company Number: None

PATIENT
  Age: 34 Year
  Sex: Male

DRUGS (1)
  1. LOVAZA [Suspect]
     Indication: BLOOD CHOLESTEROL
     Dosage: TAKE 2 CAPSULES BY MOUTH EVERY 12 HOURS
     Route: 048
     Dates: start: 20120311, end: 20120318

REACTIONS (3)
  - DIARRHOEA [None]
  - FOOD POISONING [None]
  - PRODUCT QUALITY ISSUE [None]
